FAERS Safety Report 9602287 (Version 3)
Quarter: 2014Q2

REPORT INFORMATION
  Report Type: Spontaneous
  Country: JP (occurrence: JP)
  Receive Date: 20131007
  Receipt Date: 20140506
  Transmission Date: 20141212
  Serious: Yes (Hospitalization)
  Sender: FDA-Public Use
  Company Number: JP-ELI_LILLY_AND_COMPANY-JP201309010040

PATIENT
  Age: 75 Year
  Sex: Male
  Weight: 50.2 kg

DRUGS (3)
  1. ZYPREXA [Suspect]
     Indication: SCHIZOPHRENIA
     Dosage: 5 MG, QD
     Route: 048
  2. DESYREL [Suspect]
     Indication: PRODUCT USED FOR UNKNOWN INDICATION
     Dosage: 25 MG, QD
     Route: 048
  3. RISPERIDONE [Concomitant]
     Indication: RESTLESSNESS
     Dosage: 1 MG, PRN
     Route: 048

REACTIONS (1)
  - Dysphagia [Recovered/Resolved]
